FAERS Safety Report 25623456 (Version 1)
Quarter: 2025Q3

REPORT INFORMATION
  Report Type: Spontaneous
  Country: EU (occurrence: EU)
  Receive Date: 20250730
  Receipt Date: 20250730
  Transmission Date: 20251021
  Serious: Yes (Death, Hospitalization)
  Sender: UCB
  Company Number: None

PATIENT
  Age: 89 Year
  Sex: Female
  Weight: 66.5 kg

DRUGS (14)
  1. KEPPRA [Suspect]
     Active Substance: LEVETIRACETAM
     Indication: Status epilepticus
     Dosage: 500 MG MORNING AND EVENING
     Route: 042
     Dates: start: 20250630, end: 20250702
  2. KEPPRA [Suspect]
     Active Substance: LEVETIRACETAM
     Dosage: 500 MG MORNING AND EVENING
     Route: 048
     Dates: start: 20250702, end: 20250715
  3. TINZAPARIN SODIUM [Concomitant]
     Active Substance: TINZAPARIN SODIUM
     Indication: Thrombosis prophylaxis
     Dosage: 11000 INTERNATIONAL UNIT, ONCE DAILY (QD)
     Route: 058
     Dates: start: 20250630, end: 20250701
  4. TINZAPARIN SODIUM [Concomitant]
     Active Substance: TINZAPARIN SODIUM
     Dosage: 9000 INTERNATIONAL UNIT, ONCE DAILY (QD)
     Route: 058
     Dates: start: 20250601
  5. MELATONIN [Concomitant]
     Active Substance: MELATONIN
     Indication: Sleep disorder
     Dosage: TWO 2 MG TABLETS
     Route: 048
     Dates: start: 20250616
  6. PANTOPRAZOLE [Concomitant]
     Active Substance: PANTOPRAZOLE
     Indication: Gastrooesophageal reflux disease
     Route: 048
     Dates: start: 20250616, end: 20250707
  7. PANTOPRAZOLE [Concomitant]
     Active Substance: PANTOPRAZOLE
     Dosage: 40 MILLIGRAM, ONCE DAILY (QD)
     Route: 048
     Dates: start: 20250707
  8. ONDANSETRON [Concomitant]
     Active Substance: ONDANSETRON
     Indication: Nausea
     Dosage: IF NEEDED
     Route: 048
     Dates: start: 20250621
  9. POLYETHYLENE GLYCOL 4000 [Concomitant]
     Active Substance: POLYETHYLENE GLYCOL 4000
     Indication: Constipation
     Dosage: TWO SACHETS MORNING AND MIDDAY
     Route: 048
     Dates: start: 20250623
  10. POTASSIUM CHLORIDE [Concomitant]
     Active Substance: POTASSIUM CHLORIDE
     Indication: Hypokalaemia
     Dosage: TWO CAPSULES, MORNING AND MIDDAY
     Route: 048
     Dates: start: 20250703, end: 20250709
  11. POTASSIUM CHLORIDE [Concomitant]
     Active Substance: POTASSIUM CHLORIDE
     Dosage: ONE CAPSULE, MIDDAY AND EVENING
     Route: 048
     Dates: start: 20250709, end: 20250711
  12. POTASSIUM CHLORIDE [Concomitant]
     Active Substance: POTASSIUM CHLORIDE
     Dosage: TWO CAPSULES MORNING AND MIDDAY, THREE CAPSULES EVENING
     Route: 048
     Dates: start: 20250711, end: 20250716
  13. ESIDREX [Concomitant]
     Active Substance: HYDROCHLOROTHIAZIDE
     Indication: Cardiac failure
     Route: 048
     Dates: start: 20250713, end: 20250715
  14. ESIDREX [Concomitant]
     Active Substance: HYDROCHLOROTHIAZIDE
     Dosage: 25 MILLIGRAM, ONCE DAILY (QD)
     Route: 048
     Dates: start: 20250715

REACTIONS (2)
  - Cardio-respiratory arrest [Fatal]
  - Rash maculo-papular [Not Recovered/Not Resolved]

NARRATIVE: CASE EVENT DATE: 20250714
